FAERS Safety Report 14998065 (Version 3)
Quarter: 2018Q3

REPORT INFORMATION
  Report Type: Report from Study
  Country: US (occurrence: US)
  Receive Date: 20180611
  Receipt Date: 20180814
  Transmission Date: 20181010
  Serious: Yes (Hospitalization)
  Sender: FDA-Public Use
  Company Number: US-ACTELION-A-US2018-173395

PATIENT
  Age: 84 Year
  Sex: Female

DRUGS (1)
  1. OPSUMIT [Suspect]
     Active Substance: MACITENTAN
     Indication: PULMONARY ARTERIAL HYPERTENSION
     Dosage: 10 MG, QD
     Route: 048
     Dates: start: 20171027

REACTIONS (11)
  - Muscular weakness [Unknown]
  - Diabetic neuropathy [Unknown]
  - Cardiac failure [Unknown]
  - Mental status changes [Unknown]
  - Hyperkalaemia [Unknown]
  - Gait disturbance [Unknown]
  - Urinary tract infection [Unknown]
  - Condition aggravated [Unknown]
  - Culture urine positive [Unknown]
  - Klebsiella test positive [Unknown]
  - Emergency care [Unknown]
